FAERS Safety Report 6752455-5 (Version None)
Quarter: 2010Q2

REPORT INFORMATION
  Report Type: 
  Country: None (occurrence: None)
  Receive Date: 20100602
  Receipt Date: 20100524
  Transmission Date: 20101027
  Serious: Yes (Other)
  Sender: FDA-Public Use
  Company Number: US-JNJFOC-20100509683

PATIENT
  Sex: Male

DRUGS (2)
  1. TYLENOL [Suspect]
     Route: 065
  2. TYLENOL [Suspect]
     Indication: PYREXIA
     Dosage: 2 CAPLETS TWICE A DAY
     Route: 065

REACTIONS (2)
  - NEOPLASM MALIGNANT [None]
  - PRODUCT QUALITY ISSUE [None]
